FAERS Safety Report 4819563-7 (Version None)
Quarter: 2005Q4

REPORT INFORMATION
  Report Type: 
  Country: None (occurrence: None)
  Receive Date: 20051102
  Receipt Date: 20051102
  Transmission Date: 20060501
  Serious: No
  Sender: FDA-Public Use
  Company Number: None

PATIENT
  Age: 78 Year
  Sex: Male
  Weight: 81.8 kg

DRUGS (1)
  1. CEFEPIME 2 GRAMS (MAXIPIME) [Suspect]
     Indication: PNEUMONIA
     Dosage: 2 GRAMS IV Q12H
     Route: 042
     Dates: start: 20050808, end: 20050816

REACTIONS (3)
  - IATROGENIC INJURY [None]
  - SIMILAR REACTION ON PREVIOUS EXPOSURE TO DRUG [None]
  - THROMBOCYTOPENIA [None]
